FAERS Safety Report 16261444 (Version 2)
Quarter: 2020Q3

REPORT INFORMATION
  Report Type: Report from Study
  Country: US (occurrence: US)
  Receive Date: 20190501
  Receipt Date: 20200817
  Transmission Date: 20201102
  Serious: Yes (Hospitalization, Other)
  Sender: FDA-Public Use
  Company Number: US-ASTELLAS-2019US018461

PATIENT
  Age: 77 Year
  Sex: Male

DRUGS (1)
  1. ENZALUTAMIDE [Suspect]
     Active Substance: ENZALUTAMIDE
     Indication: PRODUCT USED FOR UNKNOWN INDICATION
     Dosage: UNK, UNKNOWN FREQ.
     Route: 065

REACTIONS (8)
  - Throat irritation [Unknown]
  - Regurgitation [Unknown]
  - Choking [Unknown]
  - Product size issue [Unknown]
  - Poor quality product administered [Unknown]
  - Atrial fibrillation [Unknown]
  - Product use complaint [Unknown]
  - Product physical issue [Unknown]

NARRATIVE: CASE EVENT DATE: 20190410
